FAERS Safety Report 8623181-2 (Version None)
Quarter: 2012Q3

REPORT INFORMATION
  Report Type: 
  Country: None (occurrence: None)
  Receive Date: 20120827
  Receipt Date: 20120821
  Transmission Date: 20120928
  Serious: Yes (Hospitalization)
  Sender: FDA-Public Use
  Company Number: PHHO2010JP03855

PATIENT
  Sex: Male
  Weight: 76 kg

DRUGS (10)
  1. ALISKIREN [Suspect]
     Indication: CARDIOVASCULAR DISORDER
     Dosage: UNK
     Route: 048
     Dates: start: 20080610, end: 20111226
  2. CANDESARTAN CILEXETIL [Concomitant]
     Dosage: UNK
  3. ASPIRIN [Concomitant]
     Dosage: UNK
  4. NIZATIDINE [Concomitant]
     Dosage: UNK
  5. NOVORAPID [Concomitant]
     Dosage: 18 IU, UNK
  6. NOVORAPID [Concomitant]
     Dosage: 9 TO 18 IU DAILY
  7. ZETIA [Concomitant]
  8. ACTOS [Concomitant]
     Dosage: 30 MG, QD
     Dates: start: 20110929
  9. AMLODIPINE [Concomitant]
     Dosage: UNK
  10. PLAVIX [Concomitant]
     Dosage: UNK

REACTIONS (5)
  - COLONIC POLYP [None]
  - CARDIAC FAILURE [None]
  - ANGINA PECTORIS [None]
  - CHEST PAIN [None]
  - CORONARY ARTERY OCCLUSION [None]
